FAERS Safety Report 11645717 (Version 1)
Quarter: 2015Q4

REPORT INFORMATION
  Report Type: Spontaneous
  Country: US (occurrence: None)
  Receive Date: 20151020
  Receipt Date: 20151020
  Transmission Date: 20160304
  Serious: Yes (Hospitalization, Other)
  Sender: FDA-Public Use
  Company Number: US-MDT-ADR-2015-01984

PATIENT
  Age: 87 Year
  Sex: Female

DRUGS (2)
  1. BACLOFEN INTRATHECAL 200 MCG/ML [Suspect]
     Active Substance: BACLOFEN
     Indication: SPINAL PAIN
  2. FENTANYL INTRATHECAL 800 MCG/ML [Suspect]
     Active Substance: FENTANYL

REACTIONS (4)
  - Drug withdrawal syndrome [None]
  - Confusional state [None]
  - Agitation [None]
  - Fall [None]
